FAERS Safety Report 7785023-7 (Version None)
Quarter: 2011Q3

REPORT INFORMATION
  Report Type: 
  Country: None (occurrence: None)
  Receive Date: 20110929
  Receipt Date: 20110923
  Transmission Date: 20111222
  Serious: Yes (Hospitalization)
  Sender: FDA-Public Use
  Company Number: DE-BRISTOL-MYERS SQUIBB COMPANY-16046146

PATIENT
  Age: 53 Year
  Sex: Male
  Weight: 74 kg

DRUGS (5)
  1. ENOXAPARIN SODIUM [Concomitant]
  2. IPILIMUMAB [Suspect]
     Indication: MALIGNANT MELANOMA
     Dosage: NUMBER OF CYCLES:4,LAST INF:22JUL11,RESTARTED:20MAY11-STOPED:22JUL11
     Route: 042
     Dates: start: 20110520, end: 20110722
  3. RANITIC [Concomitant]
  4. IBUPROFEN TABLETS [Concomitant]
  5. PREDNISOLONE [Concomitant]

REACTIONS (5)
  - DIARRHOEA [None]
  - PAIN [None]
  - COLITIS [None]
  - VENOUS THROMBOSIS [None]
  - LARGE INTESTINE PERFORATION [None]
